FAERS Safety Report 4793478-5 (Version None)
Quarter: 2005Q4

REPORT INFORMATION
  Report Type: 
  Country: None (occurrence: None)
  Receive Date: 20051011
  Receipt Date: 20020110
  Transmission Date: 20060501
  Serious: Yes (Other)
  Sender: FDA-Public Use
  Company Number: US-BRISTOL-MYERS SQUIBB COMPANY-13033030

PATIENT

DRUGS (1)
  1. GLUCOPHAGE XR [Suspect]

REACTIONS (1)
  - LACTIC ACIDOSIS [None]
